FAERS Safety Report 10147496 (Version 1)
Quarter: 2014Q2

REPORT INFORMATION
  Report Type: Spontaneous
  Country: US (occurrence: US)
  Receive Date: 20140501
  Receipt Date: 20140501
  Transmission Date: 20141212
  Serious: No
  Sender: FDA-Public Use
  Company Number: US-009507513-1404USA011953

PATIENT
  Sex: Male

DRUGS (8)
  1. JANUVIA [Suspect]
     Indication: TYPE 2 DIABETES MELLITUS
     Dosage: 50 MG, QD
     Route: 048
  2. METFORM [Concomitant]
     Dosage: 500 MG, 4 TAB QD
     Route: 048
  3. TENORMIN [Concomitant]
     Route: 065
  4. LESCOL [Concomitant]
     Route: 065
  5. CELEBREX [Concomitant]
     Route: 065
  6. ASPIRIN [Concomitant]
     Dosage: 81 MG, UNK
     Route: 048
  7. TYLENOL [Concomitant]
     Route: 065
  8. CYANOCOBALAMIN [Concomitant]
     Dosage: 1000 MG, UNK
     Route: 065

REACTIONS (1)
  - Gynaecomastia [Unknown]
